FAERS Safety Report 8427807-8 (Version None)
Quarter: 2012Q2

REPORT INFORMATION
  Report Type: 
  Country: None (occurrence: None)
  Receive Date: 20120611
  Receipt Date: 20120605
  Transmission Date: 20120825
  Serious: Yes (Hospitalization)
  Sender: FDA-Public Use
  Company Number: FR-PFIZER INC-2012134377

PATIENT
  Age: 48 Year
  Sex: Female

DRUGS (11)
  1. REQUIP [Suspect]
     Dosage: 20 MG, UNK
     Dates: start: 20120228
  2. AZILECT [Concomitant]
     Dosage: 1 MG, UNK
     Dates: start: 20081001
  3. REQUIP [Suspect]
     Dosage: 24 MG, 1X/DAY
     Route: 048
     Dates: start: 20120307, end: 20120326
  4. CLONAZEPAM [Concomitant]
     Dosage: UNK
     Dates: start: 20110101
  5. REQUIP [Suspect]
     Indication: PARKINSON'S DISEASE
     Dosage: UNK
     Dates: start: 20070601, end: 20070101
  6. MORPHINE SULFATE [Suspect]
     Indication: MYALGIA
     Dosage: 1 DF, 1X/DAY
     Route: 048
     Dates: start: 20120325, end: 20120325
  7. MORPHINE SULFATE [Suspect]
     Indication: PRESYNCOPE
  8. LYRICA [Suspect]
     Indication: PAIN
     Dosage: 50 MG, 2X/DAY
     Route: 048
     Dates: start: 20120307, end: 20120326
  9. REQUIP [Suspect]
     Dosage: 16 TO 20 MG
     Dates: start: 20080501
  10. STALEVO 100 [Suspect]
     Indication: PARKINSON'S DISEASE
     Dosage: 75 MG, 4X/DAY
     Route: 048
     Dates: start: 20090101
  11. MODOPAR [Suspect]
     Indication: PARKINSON'S DISEASE
     Dosage: 1 DF, AS NEEDED
     Route: 048
     Dates: start: 20090101, end: 20120326

REACTIONS (3)
  - ANXIETY [None]
  - CONFUSIONAL STATE [None]
  - PERSECUTORY DELUSION [None]
